FAERS Safety Report 4855375-6 (Version None)
Quarter: 2005Q4

REPORT INFORMATION
  Report Type: 
  Country: None (occurrence: None)
  Receive Date: 20051125
  Receipt Date: 20050810
  Transmission Date: 20060501
  Serious: Yes (Hospitalization)
  Sender: FDA-Public Use
  Company Number: US015779

PATIENT
  Age: 80 Year
  Sex: Male

DRUGS (1)
  1. TRISENOX [Suspect]
     Indication: MYELOID LEUKAEMIA
     Dosage: 0.25 MG/KG INTRAVENOUS DRIP
     Route: 041

REACTIONS (1)
  - DYSPNOEA EXACERBATED [None]
